FAERS Safety Report 17762692 (Version 2)
Quarter: 2020Q2

REPORT INFORMATION
  Report Type: Report from Study
  Country: GB (occurrence: GB)
  Receive Date: 20200509
  Receipt Date: 20200518
  Transmission Date: 20200714
  Serious: Yes (Other)
  Sender: FDA-Public Use
  Company Number: GB-SAMSUNG BIOEPIS-SB-2020-15760

PATIENT
  Sex: Female

DRUGS (1)
  1. IMRALDI [Suspect]
     Active Substance: ADALIMUMAB
     Indication: RHEUMATOID ARTHRITIS
     Route: 058
     Dates: start: 20191107

REACTIONS (6)
  - Headache [Unknown]
  - Ageusia [Recovering/Resolving]
  - COVID-19 [Recovered/Resolved]
  - Arthralgia [Unknown]
  - Panic attack [Unknown]
  - Injection site pain [Unknown]
